FAERS Safety Report 12343677 (Version 1)
Quarter: 2016Q2

REPORT INFORMATION
  Report Type: Spontaneous
  Country: CO (occurrence: CO)
  Receive Date: 20160506
  Receipt Date: 20160506
  Transmission Date: 20160815
  Serious: Yes (Other)
  Sender: FDA-Public Use
  Company Number: CO-AMGEN-COLSP2016047101

PATIENT
  Age: 72 Year
  Sex: Female

DRUGS (1)
  1. ENBREL [Suspect]
     Active Substance: ETANERCEPT
     Indication: PSORIASIS
     Dosage: 50 MG, WEEKLY
     Route: 058
     Dates: start: 201512, end: 201512

REACTIONS (7)
  - Pruritus genital [Not Recovered/Not Resolved]
  - Tooth abscess [Recovered/Resolved]
  - Pruritus [Not Recovered/Not Resolved]
  - Toothache [Not Recovered/Not Resolved]
  - Urticaria [Not Recovered/Not Resolved]
  - Nervousness [Not Recovered/Not Resolved]
  - Swelling face [Recovered/Resolved]

NARRATIVE: CASE EVENT DATE: 201603
